FAERS Safety Report 5677437-6 (Version None)
Quarter: 2008Q1

REPORT INFORMATION
  Report Type: 
  Country: None (occurrence: None)
  Receive Date: 20080324
  Receipt Date: 20080312
  Transmission Date: 20080703
  Serious: Yes (Disabling)
  Sender: FDA-Public Use
  Company Number: CA-PFIZER INC-2008014742

PATIENT
  Age: 43 Year
  Sex: Female
  Weight: 72.6 kg

DRUGS (3)
  1. LYRICA [Suspect]
     Indication: PAIN
     Route: 048
     Dates: start: 20071121, end: 20080204
  2. NAPROXEN [Concomitant]
     Route: 048
  3. HYDROMORPHONE HCL [Concomitant]
     Route: 048

REACTIONS (2)
  - CARPAL TUNNEL SYNDROME [None]
  - FLUID RETENTION [None]
